FAERS Safety Report 15988946 (Version 1)
Quarter: 2019Q1

REPORT INFORMATION
  Report Type: Spontaneous
  Country: CH (occurrence: CH)
  Receive Date: 20190221
  Receipt Date: 20190221
  Transmission Date: 20190418
  Serious: Yes (Hospitalization, Other)
  Sender: FDA-Public Use
  Company Number: CH-ROCHE-2267299

PATIENT
  Age: 49 Year
  Sex: Female

DRUGS (18)
  1. MABTHERA [Suspect]
     Active Substance: RITUXIMAB
     Route: 042
     Dates: start: 200704, end: 200903
  2. MABTHERA [Suspect]
     Active Substance: RITUXIMAB
     Route: 042
     Dates: start: 20150909
  3. IDELALISIB [Suspect]
     Active Substance: IDELALISIB
     Indication: B-CELL LYMPHOMA
     Route: 065
     Dates: start: 201512, end: 201604
  4. BENDAMUSTINA [Concomitant]
     Active Substance: BENDAMUSTINE
     Route: 065
     Dates: start: 201501, end: 201504
  5. ZYDELIG [Concomitant]
     Active Substance: IDELALISIB
     Route: 065
     Dates: start: 201606, end: 201701
  6. MABTHERA [Suspect]
     Active Substance: RITUXIMAB
     Route: 042
     Dates: start: 201207, end: 201212
  7. MABTHERA [Suspect]
     Active Substance: RITUXIMAB
     Route: 042
     Dates: start: 201703, end: 201802
  8. PREDNISONE. [Concomitant]
     Active Substance: PREDNISONE
     Route: 065
     Dates: start: 200403, end: 200404
  9. BENDAMUSTINA [Concomitant]
     Active Substance: BENDAMUSTINE
     Route: 065
     Dates: start: 201207, end: 201212
  10. LENALIDOMIDE [Concomitant]
     Active Substance: LENALIDOMIDE
     Route: 065
     Dates: start: 201703, end: 2018
  11. GAZYVARO [Suspect]
     Active Substance: OBINUTUZUMAB
     Indication: B-CELL LYMPHOMA
     Route: 042
     Dates: start: 201802, end: 201806
  12. GAZYVARO [Suspect]
     Active Substance: OBINUTUZUMAB
     Route: 042
     Dates: start: 201808
  13. BENDAMUSTINA [Concomitant]
     Active Substance: BENDAMUSTINE
     Route: 065
     Dates: start: 201802, end: 201806
  14. MABTHERA [Suspect]
     Active Substance: RITUXIMAB
     Indication: B-CELL LYMPHOMA
     Route: 042
     Dates: start: 200008, end: 200009
  15. MABTHERA [Suspect]
     Active Substance: RITUXIMAB
     Route: 042
     Dates: start: 20190103
  16. MABTHERA [Suspect]
     Active Substance: RITUXIMAB
     Route: 042
     Dates: start: 201501, end: 201504
  17. CYCLOPHOSPHAMID [Concomitant]
     Active Substance: CYCLOPHOSPHAMIDE
     Route: 065
     Dates: start: 200403, end: 200404
  18. VINCRISTIN [Concomitant]
     Active Substance: VINCRISTINE
     Route: 065
     Dates: start: 200403, end: 200404

REACTIONS (9)
  - Anaemia [Unknown]
  - Road traffic accident [Unknown]
  - Autoimmune thyroiditis [Unknown]
  - Thrombocytopenia [Not Recovered/Not Resolved]
  - Colitis [Recovered/Resolved]
  - Sinusitis [Unknown]
  - B-cell lymphoma [Unknown]
  - Spinal column injury [Unknown]
  - Herpes zoster [Recovered/Resolved]

NARRATIVE: CASE EVENT DATE: 201212
